FAERS Safety Report 24637672 (Version 2)
Quarter: 2024Q4

REPORT INFORMATION
  Report Type: Spontaneous
  Country: FR (occurrence: FR)
  Receive Date: 20241119
  Receipt Date: 20241203
  Transmission Date: 20250115
  Serious: Yes (Hospitalization, Other)
  Sender: MERCK
  Company Number: None

PATIENT
  Age: 53 Year
  Sex: Female

DRUGS (3)
  1. KEYTRUDA [Suspect]
     Active Substance: PEMBROLIZUMAB
     Indication: Triple negative breast cancer
     Dosage: 4 CARBOPLATIN TAXOL PEMBROLIZUMAB THEN 4 AC PEMBROLIZUMAB
     Route: 042
     Dates: start: 2024, end: 20240830
  2. DOXORUBICIN [Concomitant]
     Active Substance: DOXORUBICIN
     Indication: Triple negative breast cancer
     Dosage: PEMBROLIZUMAB 4 AC
     Route: 042
     Dates: start: 2024
  3. CYCLOPHOSPHAMIDE [Concomitant]
     Active Substance: CYCLOPHOSPHAMIDE
     Indication: Triple negative breast cancer
     Dosage: PEMBROLIZUMAB 4 AC
     Dates: start: 2024

REACTIONS (3)
  - Myocarditis [Unknown]
  - Immune-mediated adrenal insufficiency [Unknown]
  - Hepatic cytolysis [Unknown]

NARRATIVE: CASE EVENT DATE: 20240830
